FAERS Safety Report 7090270-6 (Version None)
Quarter: 2010Q4

REPORT INFORMATION
  Report Type: 
  Country: None (occurrence: None)
  Receive Date: 20101105
  Receipt Date: 20101105
  Transmission Date: 20110411
  Serious: Yes (Hospitalization)
  Sender: FDA-Public Use
  Company Number: None

PATIENT
  Age: 89 Year
  Sex: Female

DRUGS (8)
  1. DIOVAN HCT [Suspect]
     Indication: HYPERTENSION
     Dosage: ONDE TABLET DAILY PO
     Route: 048
  2. ALBUTEROL [Concomitant]
  3. SODIUM BISPHOSPHONATE [Concomitant]
  4. LORAZEPAM [Concomitant]
  5. BISACODYL [Concomitant]
  6. MAGNESIUM HYDROXIDE [Concomitant]
  7. ACETAMINOPHEN [Concomitant]
  8. MIRAPEX [Concomitant]

REACTIONS (7)
  - ATRIAL TACHYCARDIA [None]
  - CONFUSIONAL STATE [None]
  - HEADACHE [None]
  - HYPONATRAEMIA [None]
  - INAPPROPRIATE ANTIDIURETIC HORMONE SECRETION [None]
  - NAUSEA [None]
  - VOMITING [None]
